FAERS Safety Report 7518105-5 (Version None)
Quarter: 2011Q2

REPORT INFORMATION
  Report Type: 
  Country: None (occurrence: None)
  Receive Date: 20110531
  Receipt Date: 20110531
  Transmission Date: 20111010
  Serious: Yes (Hospitalization)
  Sender: FDA-Public Use
  Company Number: None

PATIENT
  Sex: Female
  Weight: 58 kg

DRUGS (2)
  1. TAXOL [Suspect]
     Indication: BREAST CANCER METASTATIC
     Dosage: 80MG/M2 WEEKLY IV
     Route: 042
     Dates: start: 20110503
  2. TAXOL [Suspect]
     Indication: BREAST CANCER METASTATIC
     Dosage: 80MG/M2 WEEKLY IV
     Route: 042
     Dates: start: 20110510

REACTIONS (4)
  - CATHETER SITE ERYTHEMA [None]
  - CATHETER SITE CELLULITIS [None]
  - CATHETER SITE PRURITUS [None]
  - NEUTROPENIA [None]
